FAERS Safety Report 8957702 (Version 3)
Quarter: 2013Q1

REPORT INFORMATION
  Report Type: Spontaneous
  Country: GB (occurrence: GB)
  Receive Date: 20121211
  Receipt Date: 20130222
  Transmission Date: 20140127
  Serious: Yes (Hospitalization)
  Sender: FDA-Public Use
  Company Number: GB-AMGEN-GBRSP2012078879

PATIENT
  Age: 75 Year
  Sex: Female

DRUGS (9)
  1. PROLIA [Suspect]
     Indication: PRODUCT USED FOR UNKNOWN INDICATION
     Dosage: 60 MUG, UNK
     Route: 058
     Dates: start: 20120923
  2. ARANESP [Concomitant]
  3. CHOLECALCIFEROL [Concomitant]
     Dosage: 50000 UNK, UNK
     Route: 048
  4. MYCOPHENOLATE [Concomitant]
  5. OMEPRAZOLE [Concomitant]
  6. CALCIUM [Concomitant]
  7. ENALAPRIL [Concomitant]
  8. PRAVASTATIN [Concomitant]
  9. CLOPIDOGREL [Concomitant]

REACTIONS (9)
  - Hypocalcaemia [Recovered/Resolved]
  - Atrial fibrillation [Recovered/Resolved]
  - Cardiac failure [Unknown]
  - Hypotension [Unknown]
  - Palpitations [Unknown]
  - Presyncope [Unknown]
  - Oedema peripheral [Recovered/Resolved]
  - Syncope [Recovered/Resolved]
  - Weight increased [Unknown]
